FAERS Safety Report 19267434 (Version 1)
Quarter: 2021Q2

REPORT INFORMATION
  Report Type: Spontaneous
  Country: US (occurrence: US)
  Receive Date: 20210518
  Receipt Date: 20210518
  Transmission Date: 20210717
  Serious: No
  Sender: FDA-Public Use
  Company Number: US-BION-009293

PATIENT
  Age: 72 Year
  Sex: Male

DRUGS (3)
  1. ZYDUS TAMSULOSIN HCL [Concomitant]
     Indication: BENIGN PROSTATIC HYPERPLASIA
     Dosage: STRENGTH 0.4 MG, APPROX. EIGHT TO TEN YEARS AGO, ONE CAPSULE ONCE DAILY THEN HALF OF THE CAPSULE
  2. BIONPHARMA^S IBUPROFEN CAPSULES UNKNOWN [Suspect]
     Active Substance: IBUPROFEN
     Indication: ARTHRALGIA
     Dosage: STRENGTH 600 MG
     Dates: start: 20201114
  3. NEXIUM [Concomitant]
     Active Substance: ESOMEPRAZOLE MAGNESIUM
     Dosage: THERAPY DATES: UNK?ONGOING

REACTIONS (4)
  - Mouth swelling [Recovered/Resolved]
  - Heart rate increased [Recovered/Resolved]
  - Peripheral swelling [Recovered/Resolved]
  - Urticaria [Recovered/Resolved]

NARRATIVE: CASE EVENT DATE: 20201114
